FAERS Safety Report 6860076-9 (Version None)
Quarter: 2010Q3

REPORT INFORMATION
  Report Type: 
  Country: None (occurrence: None)
  Receive Date: 20100720
  Receipt Date: 20100708
  Transmission Date: 20110219
  Serious: Yes (Life-Threatening)
  Sender: FDA-Public Use
  Company Number: JP-AMGEN-QUU422649

PATIENT
  Sex: Female
  Weight: 48 kg

DRUGS (6)
  1. ENBREL [Suspect]
     Indication: RHEUMATOID ARTHRITIS
     Dosage: UNKNOWN
     Route: 058
     Dates: start: 20090601, end: 20100101
  2. METHOTREXATE [Concomitant]
     Indication: RHEUMATOID ARTHRITIS
     Route: 048
     Dates: start: 19950101, end: 20080501
  3. METHOTREXATE [Concomitant]
     Dosage: 2 TABLETS
     Route: 048
     Dates: start: 20080501
  4. TAKEPRON [Concomitant]
     Dosage: UNKNOWN
     Route: 048
  5. PEON [Concomitant]
     Dosage: UNKNOWN
     Route: 048
  6. PREDONINE [Concomitant]
     Dosage: UNKNOWN
     Route: 048

REACTIONS (3)
  - BREAST CANCER METASTATIC [None]
  - CONDITION AGGRAVATED [None]
  - RHEUMATOID ARTHRITIS [None]
